FAERS Safety Report 14968041 (Version 1)
Quarter: 2018Q2

REPORT INFORMATION
  Report Type: Spontaneous
  Country: US (occurrence: US)
  Receive Date: 20180511
  Receipt Date: 20180511
  Transmission Date: 20180711
  Serious: Yes (Disabling)
  Sender: FDA-Public Use
  Company Number: None

PATIENT
  Age: 52 Year
  Sex: Female
  Weight: 45 kg

DRUGS (1)
  1. COLLOIDAL SILVER [Suspect]
     Active Substance: SILVER
     Indication: NUTRITIONAL SUPPLEMENTATION
     Dosage: ?          QUANTITY:2 TEASPOON(S);?
     Route: 048
     Dates: start: 20180505, end: 20180507

REACTIONS (5)
  - Malaise [None]
  - Poor quality sleep [None]
  - Abdominal pain upper [None]
  - Headache [None]
  - Product contamination [None]

NARRATIVE: CASE EVENT DATE: 20180505
